FAERS Safety Report 7554734-0 (Version None)
Quarter: 2011Q2

REPORT INFORMATION
  Report Type: 
  Country: None (occurrence: None)
  Receive Date: 20110617
  Receipt Date: 20110614
  Transmission Date: 20111010
  Serious: Yes (Life-Threatening, Other)
  Sender: FDA-Public Use
  Company Number: PHHY2011GB51976

PATIENT
  Age: 46 Year
  Sex: Female

DRUGS (7)
  1. METFORMIN HCL [Suspect]
     Indication: TYPE 2 DIABETES MELLITUS
     Route: 048
  2. IRBESARTAN [Concomitant]
  3. FELODIPINE [Concomitant]
  4. FERROUS SULFATE TAB [Concomitant]
  5. SIMVASTATIN [Concomitant]
  6. ZOPICLONE [Concomitant]
  7. GLICLAZIDE [Concomitant]

REACTIONS (12)
  - LETHARGY [None]
  - HAEMOGLOBIN DECREASED [None]
  - DIARRHOEA [None]
  - VOMITING [None]
  - HYPOXIA [None]
  - TACHYCARDIA [None]
  - TACHYPNOEA [None]
  - HYPOTENSION [None]
  - LACTIC ACIDOSIS [None]
  - ASTHENIA [None]
  - ELECTROLYTE IMBALANCE [None]
  - DEPRESSED LEVEL OF CONSCIOUSNESS [None]
